FAERS Safety Report 24793221 (Version 1)
Quarter: 2024Q4

REPORT INFORMATION
  Report Type: Spontaneous
  Country: US (occurrence: None)
  Receive Date: 20241231
  Receipt Date: 20241231
  Transmission Date: 20250115
  Serious: Yes (Hospitalization)
  Sender: Public
  Company Number: None

PATIENT
  Age: 70 Year
  Sex: Male
  Weight: 90.7 kg

DRUGS (2)
  1. XELODA [Suspect]
     Active Substance: CAPECITABINE
     Dates: end: 20241212
  2. ELOXATIN [Suspect]
     Active Substance: OXALIPLATIN
     Dates: end: 20241126

REACTIONS (3)
  - Enteritis [None]
  - Dehydration [None]
  - Hypokalaemia [None]

NARRATIVE: CASE EVENT DATE: 20241212
